FAERS Safety Report 4973412-5 (Version None)
Quarter: 2006Q2

REPORT INFORMATION
  Report Type: 
  Country: None (occurrence: None)
  Receive Date: 20060413
  Receipt Date: 20060413
  Transmission Date: 20061013
  Serious: Yes (Other)
  Sender: FDA-Public Use
  Company Number: None

PATIENT
  Sex: Female

DRUGS (1)
  1. SYNTHROID [Suspect]
     Indication: HYPOTHYROIDISM
     Dosage: .1 - .175 MG   PO  QD
     Route: 048
     Dates: start: 19990101, end: 20010101

REACTIONS (1)
  - THYROID FUNCTION TEST ABNORMAL [None]
